FAERS Safety Report 6138168-1 (Version None)
Quarter: 2009Q1

REPORT INFORMATION
  Report Type: 
  Country: None (occurrence: None)
  Receive Date: 20090331
  Receipt Date: 20090130
  Transmission Date: 20090719
  Serious: Yes (Death)
  Sender: FDA-Public Use
  Company Number: US-TYCO HEALTHCARE/MALLINCKRODT-T200900518

PATIENT
  Age: 41 Year
  Sex: Female

DRUGS (7)
  1. METHADOSE [Suspect]
     Route: 048
  2. CARISOPRODOL [Suspect]
     Route: 048
  3. BARBITURATES [Suspect]
     Route: 048
  4. COCAINE [Suspect]
     Route: 048
  5. AMPHETAMINE SULFATE [Suspect]
     Route: 048
  6. MARIJUANA [Suspect]
     Route: 048
  7. CITALOPRAM [Suspect]
     Route: 048

REACTIONS (1)
  - COMPLETED SUICIDE [None]
